FAERS Safety Report 9098114 (Version 2)
Quarter: 2013Q2

REPORT INFORMATION
  Report Type: Spontaneous
  Country: GB (occurrence: US)
  Receive Date: 20130213
  Receipt Date: 20130404
  Transmission Date: 20140414
  Serious: Yes (Death)
  Sender: FDA-Public Use
  Company Number: US-PFIZER INC-2013053277

PATIENT
  Age: 33 Year
  Sex: Male

DRUGS (3)
  1. CHLORAMPHENICOL [Suspect]
     Indication: EYE INFECTION
     Dosage: UNK
     Route: 061
     Dates: start: 197707, end: 197711
  2. TETRACYCLINE HCL [Suspect]
     Indication: ACNE
     Dosage: 250 MG TWO TO FOUR TIMES PER DAY
  3. POLYMYXIN B SULFATE [Concomitant]
     Indication: EYE INFECTION
     Dosage: UNK
     Route: 061
     Dates: start: 197707, end: 197711

REACTIONS (1)
  - Aplastic anaemia [Fatal]
